FAERS Safety Report 16265083 (Version 1)
Quarter: 2019Q2

REPORT INFORMATION
  Report Type: Spontaneous
  Country: US (occurrence: US)
  Receive Date: 20190328
  Receipt Date: 20190328
  Transmission Date: 20190711
  Serious: Yes (Hospitalization)
  Sender: FDA-Public Use
  Company Number: None

PATIENT
  Age: 21 Year
  Sex: Female

DRUGS (14)
  1. COLISTIMETHATE [Concomitant]
     Active Substance: COLISTIMETHATE SODIUM
  2. PULMOZYME [Suspect]
     Active Substance: DORNASE ALFA
     Indication: CYSTIC FIBROSIS
     Dosage: 1 AMPULE TWICE DAILY INHALED
     Route: 055
     Dates: start: 20130702
  3. URSODIOL. [Concomitant]
     Active Substance: URSODIOL
  4. MONTELUKAST [Concomitant]
     Active Substance: MONTELUKAST SODIUM
  5. TOBRAMYCIN. [Concomitant]
     Active Substance: TOBRAMYCIN
  6. CREON [Concomitant]
     Active Substance: PANCRELIPASE AMYLASE\PANCRELIPASE LIPASE\PANCRELIPASE PROTEASE
  7. SOD CHL [Concomitant]
  8. TRAMADOL. [Concomitant]
     Active Substance: TRAMADOL
  9. VIT D [Concomitant]
     Active Substance: VITAMIN D NOS
  10. ALBUTEROL. [Concomitant]
     Active Substance: ALBUTEROL
  11. CETIRIZINE [Concomitant]
     Active Substance: CETIRIZINE HYDROCHLORIDE
  12. HYDROCOD/APAP [Concomitant]
  13. DEKAS [Concomitant]
  14. PROMETHAZINE [Concomitant]
     Active Substance: PROMETHAZINE\PROMETHAZINE HYDROCHLORIDE

REACTIONS (1)
  - Lung infection [None]

NARRATIVE: CASE EVENT DATE: 20190224
